FAERS Safety Report 25757553 (Version 1)
Quarter: 2025Q3

REPORT INFORMATION
  Report Type: Spontaneous
  Country: EU (occurrence: EU)
  Receive Date: 20250903
  Receipt Date: 20250903
  Transmission Date: 20251020
  Serious: Yes (Other)
  Sender: TAKEDA
  Company Number: EU-TAKEDA-2025TUS076661

PATIENT
  Age: 49 Year
  Sex: Female

DRUGS (1)
  1. MESALAMINE [Suspect]
     Active Substance: MESALAMINE
     Indication: Product used for unknown indication

REACTIONS (5)
  - Hepatic cirrhosis [Unknown]
  - Colitis ulcerative [Unknown]
  - Blister [Unknown]
  - Skin exfoliation [Unknown]
  - Gastrointestinal mucosal disorder [Unknown]
